FAERS Safety Report 25539553 (Version 1)
Quarter: 2025Q3

REPORT INFORMATION
  Report Type: Report from Study
  Country: EU (occurrence: EU)
  Receive Date: 20250710
  Receipt Date: 20250710
  Transmission Date: 20251020
  Serious: Yes (Other)
  Sender: CHEPLAPHARM
  Company Number: EU-CHEPLA-2025008381

PATIENT
  Age: 69 Year
  Sex: Female

DRUGS (8)
  1. HYDROXYUREA [Suspect]
     Active Substance: HYDROXYUREA
     Indication: Polycythaemia vera
  2. RUXOLITINIB [Suspect]
     Active Substance: RUXOLITINIB
     Indication: Myelofibrosis
     Dates: start: 202203
  3. RUXOLITINIB [Suspect]
     Active Substance: RUXOLITINIB
     Indication: Myelofibrosis
  4. FEDRATINIB [Concomitant]
     Active Substance: FEDRATINIB
     Indication: Myelofibrosis
     Dosage: DAILY DOSE: 200 MILLIGRAM
     Dates: start: 202208
  5. FEDRATINIB [Concomitant]
     Active Substance: FEDRATINIB
     Indication: Myelofibrosis
     Dosage: DAILY DOSE: 300 MILLIGRAM
  6. FEDRATINIB [Concomitant]
     Active Substance: FEDRATINIB
     Indication: Myelofibrosis
  7. ONDANSETRON [Concomitant]
     Active Substance: ONDANSETRON
     Indication: Prophylaxis of nausea and vomiting
     Dosage: DAILY DOSE: 16 MILLIGRAM
  8. VITAMIN B1 [Concomitant]
     Active Substance: THIAMINE HYDROCHLORIDE
     Dosage: DAILY DOSE: 100 MILLIGRAM

REACTIONS (5)
  - Myelofibrosis [Recovered/Resolved]
  - Portal hypertension [Recovered/Resolved]
  - Thrombocytopenia [Recovered/Resolved]
  - Anaemia [Recovered/Resolved]
  - Coagulopathy [Recovered/Resolved]
